FAERS Safety Report 8969719 (Version 2)
Quarter: 2013Q1

REPORT INFORMATION
  Report Type: Spontaneous
  Country: FR (occurrence: FR)
  Receive Date: 20121217
  Receipt Date: 20130211
  Transmission Date: 20140127
  Serious: Yes (Other)
  Sender: FDA-Public Use
  Company Number: FR-ROCHE-1165972

PATIENT
  Sex: Male

DRUGS (20)
  1. AVASTIN [Suspect]
     Indication: COLON CANCER
     Route: 065
     Dates: start: 20120509
  2. AVASTIN [Suspect]
     Route: 065
     Dates: start: 20120523
  3. AVASTIN [Suspect]
     Route: 065
     Dates: start: 20120613
  4. AVASTIN [Suspect]
     Route: 065
     Dates: start: 20120626
  5. AVASTIN [Suspect]
     Route: 065
     Dates: start: 20120711
  6. AVASTIN [Suspect]
     Route: 065
     Dates: start: 20120725
  7. AVASTIN [Suspect]
     Route: 065
     Dates: start: 20120823
  8. AVASTIN [Suspect]
     Route: 065
     Dates: start: 20120906
  9. AVASTIN [Suspect]
     Route: 065
     Dates: start: 20120920
  10. AVASTIN [Suspect]
     Route: 065
     Dates: start: 201210
  11. IRINOTECAN [Suspect]
     Indication: COLON CANCER
     Route: 065
     Dates: start: 20120509
  12. IRINOTECAN [Suspect]
     Route: 065
     Dates: start: 20120523
  13. IRINOTECAN [Suspect]
     Route: 065
     Dates: start: 20120613
  14. IRINOTECAN [Suspect]
     Route: 065
     Dates: start: 20120626
  15. IRINOTECAN [Suspect]
     Route: 065
     Dates: start: 20120711
  16. IRINOTECAN [Suspect]
     Route: 065
     Dates: start: 20120725
  17. IRINOTECAN [Suspect]
     Route: 065
     Dates: start: 20120823
  18. IRINOTECAN [Suspect]
     Route: 065
     Dates: start: 20120906
  19. IRINOTECAN [Suspect]
     Route: 065
     Dates: start: 20120920
  20. IRINOTECAN [Suspect]
     Route: 065
     Dates: start: 201210

REACTIONS (5)
  - Rash papular [Recovering/Resolving]
  - Purpura [Recovering/Resolving]
  - Skin exfoliation [Recovering/Resolving]
  - Pruritus [Recovering/Resolving]
  - Parapsoriasis [Recovering/Resolving]
